FAERS Safety Report 9484307 (Version 1)
Quarter: 2013Q3

REPORT INFORMATION
  Report Type: Spontaneous
  Country: US (occurrence: US)
  Receive Date: 20130828
  Receipt Date: 20130828
  Transmission Date: 20140515
  Serious: Yes (Other)
  Sender: FDA-Public Use
  Company Number: US-AMGEN-KDL402833

PATIENT
  Age: 52 Year
  Sex: Female

DRUGS (2)
  1. ENBREL [Suspect]
     Indication: ANKYLOSING SPONDYLITIS
     Dosage: 50 MG, QWK
     Route: 058
  2. AZATHIOPRINE [Concomitant]
     Dosage: 150 MG, QD

REACTIONS (7)
  - Cataract [Unknown]
  - Iritis [Unknown]
  - Nasal neoplasm [Unknown]
  - Nasal turbinate abnormality [Unknown]
  - Hidradenitis [Not Recovered/Not Resolved]
  - Bronchitis [Recovered/Resolved]
  - Sinusitis [Recovered/Resolved]
